FAERS Safety Report 19642991 (Version 2)
Quarter: 2021Q3

REPORT INFORMATION
  Report Type: Spontaneous
  Country: BR (occurrence: BR)
  Receive Date: 20210731
  Receipt Date: 20210816
  Transmission Date: 20211014
  Serious: Yes (Other)
  Sender: FDA-Public Use
  Company Number: NVSC2021BR171225

PATIENT
  Age: 72 Year
  Sex: Female
  Weight: 60 kg

DRUGS (5)
  1. AZOPT [Suspect]
     Active Substance: BRINZOLAMIDE
     Dosage: 1 DRP, BID (WENT 2 MONTHS WITHOUT USING THE DRUG)
     Route: 047
     Dates: start: 2020
  2. NEOVIT [Concomitant]
     Indication: GLAUCOMA
     Dosage: 1 DF, QD (STOPPED A LONG TIME AGO)
     Route: 048
     Dates: start: 201710
  3. DRENATAN [Concomitant]
     Active Substance: LATANOPROST
     Indication: GLAUCOMA
     Dosage: 1 DRP, QD (AT NIGHT)
     Route: 047
     Dates: start: 201710
  4. AZOPT [Suspect]
     Active Substance: BRINZOLAMIDE
     Indication: GLAUCOMA
     Dosage: 1 DRP, BID
     Route: 047
     Dates: start: 201710, end: 2020
  5. DIPYRONE [Suspect]
     Active Substance: DIPYRONE
     Indication: SPINAL PAIN
     Dosage: 1 DF, QD (ONCE A DAY,WHEN NECESSARY)
     Route: 048
     Dates: start: 2019

REACTIONS (5)
  - Spinal pain [Not Recovered/Not Resolved]
  - Product dose omission issue [Recovered/Resolved]
  - Blood cholesterol abnormal [Recovered/Resolved]
  - Blindness unilateral [Not Recovered/Not Resolved]
  - Blood cholesterol abnormal [Not Recovered/Not Resolved]

NARRATIVE: CASE EVENT DATE: 2017
